FAERS Safety Report 19431593 (Version 1)
Quarter: 2021Q2

REPORT INFORMATION
  Report Type: Spontaneous
  Country: GB (occurrence: GB)
  Receive Date: 20210618
  Receipt Date: 20210618
  Transmission Date: 20210717
  Serious: Yes (Other)
  Sender: FDA-Public Use
  Company Number: GB-SA-2021SA194306

PATIENT
  Age: 43 Year
  Sex: Female

DRUGS (15)
  1. TRASTUZUMAB. [Suspect]
     Active Substance: TRASTUZUMAB
     Dosage: 514.5 MG, Q3W
     Route: 041
     Dates: start: 20170412, end: 20170412
  2. EPIRUBICIN [Suspect]
     Active Substance: EPIRUBICIN
     Dosage: 180 MG, Q3W
     Route: 042
     Dates: start: 20180427, end: 20180427
  3. AMOXILLIN [AMOXICILLIN SODIUM] [Concomitant]
     Active Substance: AMOXICILLIN SODIUM
     Indication: LOWER RESPIRATORY TRACT INFECTION
     Dosage: 500 MG, QD
     Route: 048
     Dates: start: 20180102, end: 20180107
  4. DIFFLAM [BENZYDAMINE HYDROCHLORIDE] [Concomitant]
     Indication: MOUTH ULCERATION
     Dosage: 15 ML, PRN
     Route: 048
  5. TRASTUZUMAB. [Suspect]
     Active Substance: TRASTUZUMAB
     Indication: BREAST CANCER
     Dosage: 483 MG/KG
     Route: 041
     Dates: start: 20170228
  6. EPIRUBICIN [Suspect]
     Active Substance: EPIRUBICIN
     Indication: BREAST CANCER
     Dosage: 180 MG, Q3W
     Route: 042
     Dates: start: 20180223, end: 20180223
  7. DOCETAXEL. [Suspect]
     Active Substance: DOCETAXEL
     Indication: BREAST CANCER
     Dosage: 148 MG, Q3W
     Route: 042
     Dates: start: 20170412, end: 20170412
  8. CAPECITABINE. [Suspect]
     Active Substance: CAPECITABINE
     Indication: BREAST CANCER
     Dosage: 2000 MG, BID
     Route: 048
     Dates: start: 20200721
  9. EPIRUBICIN [Suspect]
     Active Substance: EPIRUBICIN
     Dosage: 140 MG, Q3W
     Route: 042
     Dates: start: 20180525, end: 20180525
  10. PERTUZUMAB. [Suspect]
     Active Substance: PERTUZUMAB
     Dosage: 420 MG/KG, Q3W
     Route: 042
     Dates: start: 20180112, end: 20180112
  11. DOCETAXEL. [Suspect]
     Active Substance: DOCETAXEL
     Dosage: 148 MG, Q3W
     Route: 042
     Dates: start: 20170614, end: 20170614
  12. PERTUZUMAB. [Suspect]
     Active Substance: PERTUZUMAB
     Indication: BREAST CANCER
     Dosage: 420 MG/KG, Q3W
     Route: 042
     Dates: start: 20170412, end: 20170412
  13. SENNA [Concomitant]
     Active Substance: SENNA LEAF\SENNOSIDES\SENNOSIDES A AND B
     Indication: CONSTIPATION
     Dosage: 15 MG, BID
     Route: 048
  14. LACTULOSE. [Concomitant]
     Active Substance: LACTULOSE
     Indication: CONSTIPATION
     Dosage: 15 ML, QD
     Route: 048
  15. EPIRUBICIN [Suspect]
     Active Substance: EPIRUBICIN
     Dosage: 140 MG, Q3W
     Route: 042
     Dates: start: 20180615, end: 20180615

REACTIONS (1)
  - Systolic dysfunction [Unknown]

NARRATIVE: CASE EVENT DATE: 20210216
